FAERS Safety Report 13936286 (Version 1)
Quarter: 2017Q3

REPORT INFORMATION
  Report Type: Report from Study
  Country: US (occurrence: US)
  Receive Date: 20170905
  Receipt Date: 20170905
  Transmission Date: 20171127
  Serious: Yes (Hospitalization, Other)
  Sender: FDA-Public Use
  Company Number: US-GILEAD-2017-0291901

PATIENT
  Age: 53 Year
  Sex: Female

DRUGS (2)
  1. ADEMPAS [Concomitant]
     Active Substance: RIOCIGUAT
  2. AMBRISENTAN [Suspect]
     Active Substance: AMBRISENTAN
     Indication: PULMONARY HYPERTENSION
     Dosage: 10 MG, QD
     Route: 065
     Dates: start: 20150625

REACTIONS (7)
  - Angina pectoris [Unknown]
  - Wrong drug administered [Unknown]
  - Unresponsive to stimuli [Unknown]
  - Feeling abnormal [Unknown]
  - Device related infection [Unknown]
  - Chest pain [Unknown]
  - Back pain [Unknown]
